FAERS Safety Report 9539163 (Version 2)
Quarter: 2013Q3

REPORT INFORMATION
  Report Type: Spontaneous
  Country: US (occurrence: None)
  Receive Date: 20130917
  Receipt Date: 20130923
  Transmission Date: 20140515
  Serious: Yes (Hospitalization)
  Sender: FDA-Public Use
  Company Number: AUR-APL-2013-07729

PATIENT
  Age: 65 Year
  Sex: Male

DRUGS (6)
  1. METOPROLOL [Suspect]
     Indication: ATRIAL FIBRILLATION
  2. DEXAMETHASONE SODIUM PHOSPHATE [Suspect]
     Indication: CHEMOTHERAPY
  3. VERAPAMIL HCL [Suspect]
     Indication: ATRIAL FIBRILLATION
  4. DIGOXIN [Suspect]
     Indication: ATRIAL FIBRILLATION
  5. CARBOPLATIN (CARBOPLATIN) [Concomitant]
  6. PEMETREXED (PEMETREXED) [Concomitant]

REACTIONS (4)
  - Renal failure acute [None]
  - Acidosis [None]
  - Hyperglycaemia [None]
  - Sinus bradycardia [None]
